FAERS Safety Report 6671049-3 (Version None)
Quarter: 2010Q2

REPORT INFORMATION
  Report Type: 
  Country: None (occurrence: None)
  Receive Date: 20100407
  Receipt Date: 20100113
  Transmission Date: 20101027
  Serious: Yes (Hospitalization)
  Sender: FDA-Public Use
  Company Number: FR-PFIZER INC-2010041702

PATIENT
  Sex: Female
  Weight: 2.79 kg

DRUGS (1)
  1. ATARAX [Suspect]
     Dosage: 50 MG
     Route: 064

REACTIONS (2)
  - DRUG EXPOSURE DURING PREGNANCY [None]
  - RESPIRATORY DEPRESSION [None]
